FAERS Safety Report 22176970 (Version 4)
Quarter: 2023Q2

REPORT INFORMATION
  Report Type: Report from Study
  Country: FR (occurrence: None)
  Receive Date: 20230405
  Receipt Date: 20230510
  Transmission Date: 20230722
  Serious: Yes (Death, Hospitalization)
  Sender: FDA-Public Use
  Company Number: FR-ROCHE-3323847

PATIENT
  Age: 70 Year
  Sex: Male

DRUGS (11)
  1. ATEZOLIZUMAB [Suspect]
     Active Substance: ATEZOLIZUMAB
     Indication: Non-small cell lung cancer
     Dosage: DATE OF LAST ADMINISTRATION OF STUDY TREATMENT 10/MAR/2023
     Route: 065
     Dates: start: 20230217
  2. PACLITAXEL [Suspect]
     Active Substance: PACLITAXEL
     Indication: Non-small cell lung cancer
     Dosage: MOST RECENT DOSE WAS ADMINISTERED ON 10/MAR/2023
     Route: 065
     Dates: start: 20230303
  3. CARBOPLATIN [Suspect]
     Active Substance: CARBOPLATIN
     Indication: Non-small cell lung cancer
     Route: 065
     Dates: start: 20230217
  4. PERINDOPRIL [Concomitant]
     Active Substance: PERINDOPRIL
  5. ASPIRIN [Concomitant]
     Active Substance: ASPIRIN
  6. GLICLAZIDE [Concomitant]
     Active Substance: GLICLAZIDE
  7. DAPAGLIFLOZIN [Concomitant]
     Active Substance: DAPAGLIFLOZIN
  8. METFORMIN [Concomitant]
     Active Substance: METFORMIN HYDROCHLORIDE
  9. SILODOSIN [Concomitant]
     Active Substance: SILODOSIN
  10. ZOPICLONE [Concomitant]
     Active Substance: ZOPICLONE
  11. TAMSULOSIN HYDROCHLORIDE [Concomitant]
     Active Substance: TAMSULOSIN HYDROCHLORIDE

REACTIONS (5)
  - Back pain [Not Recovered/Not Resolved]
  - Sepsis [Not Recovered/Not Resolved]
  - Dyspnoea [Not Recovered/Not Resolved]
  - Pyrexia [Not Recovered/Not Resolved]
  - Disease progression [Fatal]

NARRATIVE: CASE EVENT DATE: 20230327
